FAERS Safety Report 9695234 (Version 2)
Quarter: 2014Q2

REPORT INFORMATION
  Report Type: Spontaneous
  Country: AU (occurrence: AU)
  Receive Date: 20131119
  Receipt Date: 20140429
  Transmission Date: 20141212
  Serious: Yes (Death, Congenital Anomaly, Other)
  Sender: FDA-Public Use
  Company Number: AU-ABBVIE-13P-008-1157708-00

PATIENT
  Sex: Female

DRUGS (2)
  1. VALPROATE SODIUM [Suspect]
     Indication: FOETAL EXPOSURE DURING PREGNANCY
  2. CARBAMAZEPINE [Suspect]
     Indication: FOETAL EXPOSURE DURING PREGNANCY

REACTIONS (5)
  - Heart disease congenital [Fatal]
  - Foetal exposure during pregnancy [Unknown]
  - Hypoplastic left heart syndrome [Fatal]
  - Papillary muscle infarction [Fatal]
  - Cardiac failure congestive [Fatal]
